FAERS Safety Report 4444265-9 (Version None)
Quarter: 2004Q3

REPORT INFORMATION
  Report Type: 
  Country: None (occurrence: None)
  Receive Date: 20040902
  Receipt Date: 20040818
  Transmission Date: 20050211
  Serious: Yes (Life-Threatening, Hospitalization, Other)
  Sender: FDA-Public Use
  Company Number: USA040875874

PATIENT
  Age: 52 Year
  Sex: Female
  Weight: 79 kg

DRUGS (2)
  1. HUMALOG [Suspect]
     Dosage: 16 U DAY
  2. HUMULIN N [Suspect]
     Dosage: 26 U DAY

REACTIONS (6)
  - CEREBROVASCULAR ACCIDENT [None]
  - CONSCIOUSNESS FLUCTUATING [None]
  - FALL [None]
  - HEMIPLEGIA [None]
  - SPEECH DISORDER [None]
  - VASCULAR OCCLUSION [None]
